FAERS Safety Report 20696212 (Version 1)
Quarter: 2022Q2

REPORT INFORMATION
  Report Type: Spontaneous
  Country: US (occurrence: US)
  Receive Date: 20220411
  Receipt Date: 20220411
  Transmission Date: 20220721
  Serious: Yes (Other)
  Sender: FDA-Public Use
  Company Number: US-ADVANZ PHARMA-202203001969

PATIENT

DRUGS (1)
  1. CLONIDINE [Suspect]
     Active Substance: CLONIDINE
     Dosage: 30 DOSAGE FORM (INGESTED 30 PILLS)
     Route: 048

REACTIONS (5)
  - Suicide attempt [Unknown]
  - Cardiac failure [Unknown]
  - Chest pain [Unknown]
  - Vasospasm [Unknown]
  - Intentional overdose [Unknown]
